FAERS Safety Report 16228350 (Version 1)
Quarter: 2019Q2

REPORT INFORMATION
  Report Type: Spontaneous
  Country: US (occurrence: US)
  Receive Date: 20190422
  Receipt Date: 20190422
  Transmission Date: 20190711
  Serious: Yes (Other)
  Sender: FDA-Public Use
  Company Number: None

PATIENT
  Sex: Female

DRUGS (23)
  1. VOTRIENT [Suspect]
     Active Substance: PAZOPANIB HYDROCHLORIDE
     Indication: BREAST CANCER FEMALE
     Route: 048
     Dates: start: 20111109
  2. HUMALOG [Concomitant]
     Active Substance: INSULIN LISPRO
  3. TUMS [Concomitant]
     Active Substance: CALCIUM CARBONATE
  4. AUGMENTIN [Concomitant]
     Active Substance: AMOXICILLIN\CLAVULANATE POTASSIUM
  5. FLUOXETINE [Concomitant]
     Active Substance: FLUOXETINE HYDROCHLORIDE
  6. FUROSEMIDE. [Concomitant]
     Active Substance: FUROSEMIDE
  7. HYDROCO/APAP [Concomitant]
     Active Substance: ACETAMINOPHEN\HYDROCODONE
  8. LOMOTIL [Concomitant]
     Active Substance: ATROPINE SULFATE\DIPHENOXYLATE HYDROCHLORIDE
  9. LOSARTAN. [Concomitant]
     Active Substance: LOSARTAN
  10. VOTRIENT [Suspect]
     Active Substance: PAZOPANIB HYDROCHLORIDE
     Indication: RENAL CANCER
     Route: 048
     Dates: start: 20111109
  11. EPHEDRA [Concomitant]
     Active Substance: EPHEDRA
  12. LOPERAMIDE [Concomitant]
     Active Substance: LOPERAMIDE
  13. ISOSORBIDE. [Concomitant]
     Active Substance: ISOSORBIDE
  14. CYMBALTA [Concomitant]
     Active Substance: DULOXETINE HYDROCHLORIDE
  15. LANTUS [Concomitant]
     Active Substance: INSULIN GLARGINE
  16. CUBICIN [Concomitant]
     Active Substance: DAPTOMYCIN
  17. HYDROCHLOROTHIAZIDE. [Concomitant]
     Active Substance: HYDROCHLOROTHIAZIDE
  18. MORPHINE [Concomitant]
     Active Substance: MORPHINE
  19. AMLODIPINE [Concomitant]
     Active Substance: AMLODIPINE BESYLATE
  20. GABAPENTIN. [Concomitant]
     Active Substance: GABAPENTIN
  21. OXYCODONE [Concomitant]
     Active Substance: OXYCODONE
  22. PHENERGAN / TYLENOL [Concomitant]
  23. RISPERDAL / VITAMIN D3 [Concomitant]

REACTIONS (1)
  - Nausea [None]
